FAERS Safety Report 5613508-8 (Version None)
Quarter: 2008Q1

REPORT INFORMATION
  Report Type: 
  Country: None (occurrence: None)
  Receive Date: 20080120
  Receipt Date: 20080122
  Transmission Date: 20080703
  Serious: Yes (Hospitalization, Other)
  Sender: FDA-Public Use
  Company Number: 2007SP024162

PATIENT
  Age: 43 Year
  Sex: Female
  Weight: 61.2356 kg

DRUGS (2)
  1. PEG-INTRON [Suspect]
     Indication: HEPATITIS C
     Dosage: ;SC
     Route: 058
     Dates: start: 20070927, end: 20071101
  2. REBETOL [Suspect]
     Indication: HEPATITIS C
     Dosage: ;PO
     Route: 048
     Dates: start: 20070927, end: 20071101

REACTIONS (9)
  - ATAXIA [None]
  - DECREASED APPETITE [None]
  - DEHYDRATION [None]
  - DYSARTHRIA [None]
  - FLUID INTAKE REDUCED [None]
  - HALLUCINATION, VISUAL [None]
  - MOOD SWINGS [None]
  - ORAL INTAKE REDUCED [None]
  - THERAPEUTIC AGENT TOXICITY [None]
